FAERS Safety Report 4904782-1 (Version None)
Quarter: 2006Q1

REPORT INFORMATION
  Report Type: 
  Country: None (occurrence: None)
  Receive Date: 20060203
  Receipt Date: 20060125
  Transmission Date: 20060701
  Serious: Yes (Hospitalization)
  Sender: FDA-Public Use
  Company Number: 2006012876

PATIENT
  Age: 57 Year
  Sex: Male

DRUGS (3)
  1. QUINAZIL (QUINAPRIL HYDROCHLORIDE) [Suspect]
     Indication: ILL-DEFINED DISORDER
     Dosage: 1 UNIT (QD), ORAL
     Route: 048
     Dates: start: 20020107, end: 20060107
  2. PLENDIL [Concomitant]
  3. PRESSURAL (INDAPAMIDE) [Concomitant]

REACTIONS (2)
  - ANGIONEUROTIC OEDEMA [None]
  - INTRACRANIAL VENOUS SINUS THROMBOSIS [None]
